FAERS Safety Report 21898127 (Version 1)
Quarter: 2023Q1

REPORT INFORMATION
  Report Type: Spontaneous
  Country: JP (occurrence: JP)
  Receive Date: 20230123
  Receipt Date: 20230123
  Transmission Date: 20230417
  Serious: Yes (Other)
  Sender: FDA-Public Use
  Company Number: JP-PFIZER INC-PV202200126469

PATIENT
  Age: 6 Decade
  Sex: Female
  Weight: 59 kg

DRUGS (5)
  1. PAXLOVID [Suspect]
     Active Substance: NIRMATRELVIR\RITONAVIR
     Indication: COVID-19 treatment
     Dosage: [PF-07321332 300 MG]/[RITONAVIR 100 MG]; 2X/DAY
     Route: 048
     Dates: start: 20221212, end: 20221214
  2. LOXOPROFEN [Concomitant]
     Active Substance: LOXOPROFEN
     Indication: Back pain
     Dosage: 60 MG, 3X/DAY
     Route: 048
     Dates: start: 20221203
  3. REBAMIPIDE [Concomitant]
     Active Substance: REBAMIPIDE
     Indication: Back pain
     Dosage: 100 MG, 3X/DAY
     Route: 048
     Dates: start: 20221203
  4. TANDOSPIRONE [Concomitant]
     Active Substance: TANDOSPIRONE
     Indication: Anxiety
     Dosage: 10 MG, 1X/DAY
     Route: 048
     Dates: start: 20221205
  5. TANDOSPIRONE [Concomitant]
     Active Substance: TANDOSPIRONE
     Indication: Sleep disorder

REACTIONS (5)
  - Nausea [Recovering/Resolving]
  - Vomiting [Recovering/Resolving]
  - Platelet count decreased [Unknown]
  - Alanine aminotransferase increased [Unknown]
  - Gamma-glutamyltransferase increased [Unknown]

NARRATIVE: CASE EVENT DATE: 20221214
